FAERS Safety Report 9903050 (Version 2)
Quarter: 2017Q2

REPORT INFORMATION
  Report Type: Report from Study
  Country: US (occurrence: US)
  Receive Date: 20140217
  Receipt Date: 20170425
  Transmission Date: 20170830
  Serious: Yes (Other)
  Sender: FDA-Public Use
  Company Number: PHEH2014US002977

PATIENT
  Sex: Female

DRUGS (1)
  1. GILENYA [Suspect]
     Active Substance: FINGOLIMOD HYDROCHLORIDE
     Indication: RELAPSING-REMITTING MULTIPLE SCLEROSIS
     Dosage: UNK
     Route: 048
     Dates: start: 20110301

REACTIONS (10)
  - Sjogren^s syndrome [Unknown]
  - Cognitive disorder [Recovering/Resolving]
  - Balance disorder [Unknown]
  - Temperature intolerance [Unknown]
  - Decreased immune responsiveness [Unknown]
  - Thyroid mass [Recovered/Resolved]
  - Uhthoff^s phenomenon [Unknown]
  - Fibromyalgia [Unknown]
  - Malaise [Unknown]
  - Herpes zoster [Unknown]
